FAERS Safety Report 9686364 (Version 2)
Quarter: 2014Q1

REPORT INFORMATION
  Report Type: Spontaneous
  Country: BE (occurrence: BE)
  Receive Date: 20131113
  Receipt Date: 20140121
  Transmission Date: 20141002
  Serious: Yes (Hospitalization, Disabling, Other)
  Sender: FDA-Public Use
  Company Number: BE-ELI_LILLY_AND_COMPANY-BE201311001782

PATIENT
  Age: 61 Year
  Sex: Male
  Weight: 90 kg

DRUGS (2)
  1. EFIENT [Suspect]
     Indication: ACUTE CORONARY SYNDROME
     Dosage: 60 MG, SINGLE
     Dates: start: 20130929
  2. ASPIRIN                                 /SCH/ [Concomitant]
     Dosage: 500 MG, UNK
     Dates: start: 20130929

REACTIONS (4)
  - Multi-organ failure [Unknown]
  - Haemorrhage [Recovered/Resolved with Sequelae]
  - Renal failure acute [Recovered/Resolved]
  - Paraplegia [Unknown]
